FAERS Safety Report 6056641-1 (Version None)
Quarter: 2009Q1

REPORT INFORMATION
  Report Type: 
  Country: None (occurrence: None)
  Receive Date: 20090129
  Receipt Date: 20090119
  Transmission Date: 20090719
  Serious: Yes (Hospitalization)
  Sender: FDA-Public Use
  Company Number: JP-PFIZER INC-2008088238

PATIENT

DRUGS (1)
  1. AMLODIPINE [Suspect]
     Dosage: 60 DF, SINGLE
     Route: 048
     Dates: start: 20080920, end: 20080920

REACTIONS (1)
  - OVERDOSE [None]
